FAERS Safety Report 9841663 (Version 1)
Quarter: 2013Q4

REPORT INFORMATION
  Report Type: Spontaneous
  Country: US (occurrence: None)
  Receive Date: 20131223
  Receipt Date: 20131223
  Transmission Date: 20140711
  Serious: Yes (Other)
  Sender: FDA-Public Use
  Company Number: 220032LEO

PATIENT
  Sex: Female

DRUGS (1)
  1. PICATO (0.015%, GEL) [Suspect]
     Indication: BASAL CELL CARCINOMA
     Dosage: 1 IN 1 D
     Dates: start: 20121228, end: 20121228

REACTIONS (4)
  - Application site inflammation [None]
  - Application site pain [None]
  - Off label use [None]
  - Drug administration error [None]
